FAERS Safety Report 21096761 (Version 1)
Quarter: 2022Q3

REPORT INFORMATION
  Report Type: Spontaneous
  Country: US (occurrence: US)
  Receive Date: 20220718
  Receipt Date: 20220718
  Transmission Date: 20221027
  Serious: No
  Sender: FDA-Public Use
  Company Number: US-PADAGIS-2022PAD00097

PATIENT

DRUGS (1)
  1. IMIQUIMOD [Suspect]
     Active Substance: IMIQUIMOD
     Indication: Skin papilloma
     Dosage: TWICE DAILY WITH NIGHTLY OCCLUSION, 5 DAYS PER WEEK FOR 4 MONTHS
     Route: 061

REACTIONS (1)
  - Drug ineffective for unapproved indication [Unknown]
